FAERS Safety Report 24065908 (Version 1)
Quarter: 2024Q3

REPORT INFORMATION
  Report Type: Report from Study
  Country: US (occurrence: US)
  Receive Date: 20240709
  Receipt Date: 20240709
  Transmission Date: 20241016
  Serious: Yes (Hospitalization)
  Sender: GILEAD
  Company Number: US-GILEAD-2024-0679764

PATIENT
  Sex: Female

DRUGS (1)
  1. AZTREONAM LYSINE [Suspect]
     Active Substance: AZTREONAM LYSINE
     Indication: Product used for unknown indication
     Dosage: 75MG/ML INHALE 1 VIAL (75 MG) VIA HAND-HELD ALTERA NEBULIZER THREE TIMES DAILY, EVERY OTHER MONTH
     Route: 055

REACTIONS (1)
  - Infection [Unknown]
